FAERS Safety Report 14609204 (Version 3)
Quarter: 2020Q1

REPORT INFORMATION
  Report Type: Spontaneous
  Country: US (occurrence: US)
  Receive Date: 20180307
  Receipt Date: 20200115
  Transmission Date: 20200409
  Serious: Yes (Other)
  Sender: FDA-Public Use
  Company Number: US-PFIZER INC-2018091229

PATIENT
  Age: 47 Year
  Sex: Male

DRUGS (8)
  1. VIAGRA [Suspect]
     Active Substance: SILDENAFIL CITRATE
     Dosage: 50 MG, TWICE A MONTH
     Route: 048
     Dates: start: 199801, end: 200701
  2. VIAGRA [Suspect]
     Active Substance: SILDENAFIL CITRATE
     Dosage: 100 MG, TWICE A MONTH
     Route: 048
     Dates: start: 20120407, end: 201310
  3. VIAGRA [Suspect]
     Active Substance: SILDENAFIL CITRATE
     Dosage: 100 MG, TWICE A MONTH
     Route: 048
     Dates: start: 20101102, end: 20120307
  4. VIAGRA [Suspect]
     Active Substance: SILDENAFIL CITRATE
     Indication: ERECTILE DYSFUNCTION
     Dosage: UNK
     Route: 048
     Dates: end: 201607
  5. VIAGRA [Suspect]
     Active Substance: SILDENAFIL CITRATE
     Dosage: 50 MG, TWICE A MONTH
     Route: 048
     Dates: start: 20080827, end: 200910
  6. VIAGRA [Suspect]
     Active Substance: SILDENAFIL CITRATE
     Dosage: 100 MG, TWICE A MONTH
     Route: 048
     Dates: start: 20131118, end: 201501
  7. VIAGRA [Suspect]
     Active Substance: SILDENAFIL CITRATE
     Dosage: 100 MG, TWICE A MONTH
     Route: 048
     Dates: start: 20091127, end: 201010
  8. VIAGRA [Suspect]
     Active Substance: SILDENAFIL CITRATE
     Dosage: 50 MG, TWICE A MONTH
     Route: 048
     Dates: start: 20070205, end: 200807

REACTIONS (1)
  - Malignant melanoma [Unknown]

NARRATIVE: CASE EVENT DATE: 20110331
